FAERS Safety Report 17475396 (Version 2)
Quarter: 2020Q2

REPORT INFORMATION
  Report Type: Spontaneous
  Country: DE (occurrence: DE)
  Receive Date: 20200228
  Receipt Date: 20200406
  Transmission Date: 20200713
  Serious: Yes (Other)
  Sender: FDA-Public Use
  Company Number: DE-EMD SERONO-9148305

PATIENT
  Age: 60 Year
  Sex: Female
  Weight: 90 kg

DRUGS (13)
  1. MAVENCLAD [Suspect]
     Active Substance: CLADRIBINE
     Indication: MULTIPLE SCLEROSIS
     Dosage: FIRST YEAR FIRST CYCLE THERAPY: TWO TABLETS ON DAYS 1 TO 3 AND ONE TABLET ON DAY 4 AND 5.
     Route: 048
     Dates: start: 20190121
  2. VALSACOR [Concomitant]
     Active Substance: VALSARTAN
     Indication: HYPERTENSION
     Dosage: VALSACOR 320 (UNSPECIFIED UNITS)
     Route: 048
  3. PREGABALIN. [Concomitant]
     Active Substance: PREGABALIN
     Indication: PAIN
     Dosage: 25 (UNSPECIFIED UNITS)
     Route: 048
  4. DOPADURA C [Concomitant]
     Active Substance: CARBIDOPA\LEVODOPA
     Indication: RESTLESS LEGS SYNDROME
     Dosage: DOPADURA 100/25 (UNSPECIFIED UNITS)
     Route: 048
  5. HYGROTON [Concomitant]
     Active Substance: CHLORTHALIDONE
     Indication: PRODUCT USED FOR UNKNOWN INDICATION
     Dosage: 25 (UNSPECIFIED UNITS)
     Route: 048
  6. MAVENCLAD [Suspect]
     Active Substance: CLADRIBINE
     Dosage: SECOND YEAR FIRST (THIRD) CYCLE THERAPY: TWO TABLETS ON DAYS 1 TO 3 AND ONE TABLET ON DAY 4 AND 5.
     Route: 048
     Dates: start: 20200204, end: 20200208
  7. SIRDALUD [Concomitant]
     Active Substance: TIZANIDINE
     Indication: MUSCLE SPASTICITY
     Dosage: 2 (UNSPECIFIED UNITS)
     Route: 048
  8. SIMVASTATIN. [Concomitant]
     Active Substance: SIMVASTATIN
     Indication: HYPERLIPIDAEMIA
     Dosage: 10 (UNSPECIFIED UNITS)
     Route: 048
  9. NITRENDIPIN [Concomitant]
     Active Substance: NITRENDIPINE
     Indication: HYPERTONIA
     Route: 048
  10. BACLOFEN. [Concomitant]
     Active Substance: BACLOFEN
     Indication: MUSCLE SPASTICITY
     Dosage: 25 (UNSPECIFIED UNITS)
  11. MAVENCLAD [Suspect]
     Active Substance: CLADRIBINE
     Dosage: FIRST YEAR SECOND CYCLE THERAPY: TWO TABLETS ON DAYS 1 TO 3 AND ONE TABLET ON DAY 4 AND 5.
     Route: 048
     Dates: start: 20190220
  12. SULPRID [Concomitant]
     Indication: DIZZINESS
     Dosage: 50 (UNSPECIFIED UNITS)
     Route: 048
  13. PANTOPRAZOL [Concomitant]
     Active Substance: PANTOPRAZOLE SODIUM
     Indication: PROPHYLAXIS
     Dosage: 20 (UNSPECIFIED UNITS)
     Route: 048

REACTIONS (2)
  - Lymphopenia [Not Recovered/Not Resolved]
  - White blood cell count decreased [Unknown]
